FAERS Safety Report 4263658-6 (Version None)
Quarter: 2004Q1

REPORT INFORMATION
  Report Type: 
  Country: None (occurrence: None)
  Receive Date: 20040102
  Receipt Date: 20031211
  Transmission Date: 20041129
  Serious: Yes (Hospitalization)
  Sender: FDA-Public Use
  Company Number: USA031254518

PATIENT
  Age: 79 Year
  Sex: Female
  Weight: 37 kg

DRUGS (1)
  1. FORTEO [Suspect]
     Dates: start: 20030808

REACTIONS (4)
  - DEHYDRATION [None]
  - SKIN ULCER [None]
  - VIRAL INFECTION [None]
  - WEIGHT DECREASED [None]
